FAERS Safety Report 10019137 (Version 3)
Quarter: 2014Q2

REPORT INFORMATION
  Report Type: Spontaneous
  Country: US (occurrence: US)
  Receive Date: 20140318
  Receipt Date: 20140507
  Transmission Date: 20141212
  Serious: No
  Sender: FDA-Public Use
  Company Number: US-PFIZER INC-2014076660

PATIENT
  Age: 73 Year
  Sex: Male

DRUGS (9)
  1. NORVASC [Suspect]
     Dosage: 10 MG, 1X/DAY
     Route: 048
     Dates: start: 2000
  2. LIPITOR [Suspect]
     Dosage: 10 MG, 1X/DAY (QPM)
     Route: 048
     Dates: start: 2000
  3. ALEVE [Concomitant]
     Dosage: 2 TABLETS (220 MG) ONCE A DAY AS NEEDED
     Route: 048
  4. ASPIRIN [Concomitant]
     Dosage: 325 MG, 1X/DAY
     Route: 048
  5. BUTALBITAL, ACETAMINOPHEN + CAFFEINE [Concomitant]
     Indication: TENSION HEADACHE
     Dosage: 1 TABLET (50-325-40 MG) 4 TIMES A DAY AS NEEDED
     Route: 048
  6. BETAMETHASONE DIPROPIONATE/CLOTRIMAZOLE [Concomitant]
     Indication: PRURITUS
     Dosage: 0.05 - 1% CREAM, 1 APPLICATION TWICE A DAY
     Route: 061
  7. LISINOPRIL [Concomitant]
     Dosage: 10 MG, 1X/DAY
     Route: 048
  8. TRAMADOL HYDROCHLORIDE [Concomitant]
     Indication: PAIN
     Dosage: 1-2 TABLETS (50 MG) EVERY 6-8 HOURS AS NEEDED (MAX 300MG A DAY)
     Route: 048
  9. VITAMIN D3 [Concomitant]
     Dosage: 2000 IU, 1X/DAY
     Route: 048

REACTIONS (2)
  - Headache [Unknown]
  - Blood pressure abnormal [Unknown]
